FAERS Safety Report 8002628-9 (Version None)
Quarter: 2011Q4

REPORT INFORMATION
  Report Type: 
  Country: None (occurrence: None)
  Receive Date: 20111222
  Receipt Date: 20111216
  Transmission Date: 20120403
  Serious: Yes (Death)
  Sender: FDA-Public Use
  Company Number: BE-GLAXOSMITHKLINE-B0766087A

PATIENT
  Sex: Female
  Weight: 165 kg

DRUGS (4)
  1. LYRICA [Concomitant]
     Indication: EPILEPSY
     Dosage: 600MG PER DAY
     Route: 048
  2. TOPAMAX [Concomitant]
     Indication: EPILEPSY
     Dosage: 100MG PER DAY
     Route: 048
  3. DEPAKENE [Concomitant]
     Indication: EPILEPSY
     Dosage: 1750MG PER DAY
     Route: 048
  4. TROBALT [Suspect]
     Indication: EPILEPSY
     Dosage: 50MG PER DAY
     Route: 048
     Dates: start: 20111116, end: 20111120

REACTIONS (5)
  - HYPERSENSITIVITY [None]
  - MENINGOCOCCAL BACTERAEMIA [None]
  - URTICARIA [None]
  - RESPIRATORY DISTRESS [None]
  - INFLUENZA LIKE ILLNESS [None]
